FAERS Safety Report 11455661 (Version 1)
Quarter: 2015Q3

REPORT INFORMATION
  Report Type: Spontaneous
  Country: US (occurrence: US)
  Receive Date: 20150903
  Receipt Date: 20150903
  Transmission Date: 20151125
  Serious: No
  Sender: FDA-Public Use
  Company Number: US-BEH-2014046978

PATIENT
  Sex: Male
  Weight: 84 kg

DRUGS (18)
  1. HIZENTRA [Suspect]
     Active Substance: HUMAN IMMUNOGLOBULIN G
  2. SINGULAIR [Concomitant]
     Active Substance: MONTELUKAST SODIUM
  3. VALIUM [Concomitant]
     Active Substance: DIAZEPAM
  4. VITAMIN B12 [Concomitant]
     Active Substance: CYANOCOBALAMIN
  5. ZEMAIRA [Suspect]
     Active Substance: .ALPHA.1-PROTEINASE INHIBITOR HUMAN
     Route: 042
  6. LIDOCAINE. [Concomitant]
     Active Substance: LIDOCAINE
  7. FLONASE [Concomitant]
     Active Substance: FLUTICASONE PROPIONATE
  8. GABAPENTIN. [Concomitant]
     Active Substance: GABAPENTIN
  9. ACETAMINOPHEN. [Concomitant]
     Active Substance: ACETAMINOPHEN
  10. PREDNISONE. [Concomitant]
     Active Substance: PREDNISONE
  11. OMEPRAZOLE. [Concomitant]
     Active Substance: OMEPRAZOLE
  12. VITAMIN D3 [Concomitant]
     Active Substance: CHOLECALCIFEROL
  13. ULTRAM [Concomitant]
     Active Substance: TRAMADOL HYDROCHLORIDE
  14. XOPENEX [Concomitant]
     Active Substance: LEVALBUTEROL HYDROCHLORIDE
  15. DIPHENHYDRAMINE. [Concomitant]
     Active Substance: DIPHENHYDRAMINE
  16. EPINEPHRINE. [Concomitant]
     Active Substance: EPINEPHRINE
  17. CENTRUM SILVER [Concomitant]
     Active Substance: VITAMINS
  18. AMOXICILLIN. [Concomitant]
     Active Substance: AMOXICILLIN

REACTIONS (3)
  - Headache [Unknown]
  - Nausea [Unknown]
  - Back pain [Unknown]
